FAERS Safety Report 6813705-X (Version None)
Quarter: 2010Q3

REPORT INFORMATION
  Report Type: 
  Country: None (occurrence: None)
  Receive Date: 20100701
  Receipt Date: 20100624
  Transmission Date: 20110219
  Serious: Yes (Death, Other)
  Sender: FDA-Public Use
  Company Number: JP-WYE-H15850210

PATIENT
  Sex: Female

DRUGS (26)
  1. ZOSYN [Suspect]
     Dosage: 9 MG DAILY
     Route: 041
  2. DORIPENEM MONOHYDRATE [Suspect]
     Dosage: .5 MG EVERY
     Route: 041
  3. TARGOCID [Suspect]
     Route: 041
  4. POTASSIUM ASCORBATE [Concomitant]
  5. GLYCYRRHIZIC ACID [Concomitant]
     Dosage: UNKNOWN
     Dates: start: 20100331
  6. DORMICUM ^ROCHE^ [Concomitant]
     Dosage: UNKNOWN
     Dates: start: 20100402
  7. PHENOBARBITAL TAB [Concomitant]
     Dosage: UNKNOWN
  8. CLOBAZAM [Concomitant]
     Dosage: UNKNOWN
  9. DEPAKENE [Concomitant]
     Dosage: UNKNOWN
  10. MEILAX [Concomitant]
     Dosage: UNKNOWN
  11. MUCODYNE [Concomitant]
     Dosage: UNKNOWN
  12. MUCOSOLVAN [Concomitant]
     Dosage: UNKNOWN
  13. PRANLUKAST [Concomitant]
     Dosage: UNKNOWN
  14. SODIUM BROMIDE [Concomitant]
     Dosage: UNKNOWN
  15. CATAPRES [Concomitant]
     Dosage: UNKNOWN
  16. GABAPENTIN [Concomitant]
     Dosage: UNKNOWN
  17. TANNALBIN [Concomitant]
     Dosage: UNKNOWN
  18. ERYTHROMYCIN [Concomitant]
     Dosage: UNKNOWN
  19. BIOFERMIN [Concomitant]
     Dosage: UNKNOWN
  20. PULMICORT [Concomitant]
     Dosage: UNKNOWN
  21. ADSORBIN [Concomitant]
     Dosage: UNKNOWN
  22. COTRIM [Concomitant]
     Dosage: UNKNOWN
  23. AMMONIUM CHLORIDE [Concomitant]
     Dosage: UNKNOWN
     Dates: start: 20100331
  24. POTASSIUM HYDROGEN ASPARTATE [Concomitant]
     Dosage: UNKNOWN
     Dates: start: 20100329
  25. AMPHOTERICIN B [Suspect]
     Indication: PNEUMONIA
     Route: 041
     Dates: start: 20100324, end: 20100406
  26. AMPHOTERICIN B [Suspect]
     Route: 041
     Dates: start: 20100407, end: 20100411

REACTIONS (4)
  - CARDIAC ARREST [None]
  - PANCREATITIS ACUTE [None]
  - SHOCK [None]
  - SUDDEN DEATH [None]
